FAERS Safety Report 9943726 (Version 2)
Quarter: 2014Q1

REPORT INFORMATION
  Report Type: Report from Study
  Country: US (occurrence: US)
  Receive Date: 20140303
  Receipt Date: 20140303
  Transmission Date: 20141002
  Serious: No
  Sender: FDA-Public Use
  Company Number: US-ABBVIE-13P-163-1045003-00

PATIENT
  Age: 37 Year
  Sex: Female

DRUGS (4)
  1. HUMIRA [Suspect]
     Indication: PSORIATIC ARTHROPATHY
     Dates: start: 20111101
  2. NAPROXEN [Concomitant]
     Indication: INFLAMMATION
  3. TRAMADOL [Concomitant]
     Indication: PAIN
     Dosage: EVERY 4 HOURS
  4. CYCLOBENZAPRINE [Concomitant]
     Indication: MUSCLE RELAXANT THERAPY
     Dosage: AT BEDTIME

REACTIONS (1)
  - Injection site swelling [Not Recovered/Not Resolved]
